FAERS Safety Report 16665158 (Version 1)
Quarter: 2019Q3

REPORT INFORMATION
  Report Type: Spontaneous
  Country: CA (occurrence: CA)
  Receive Date: 20190803
  Receipt Date: 20190803
  Transmission Date: 20191004
  Serious: Yes (Other)
  Sender: FDA-Public Use
  Company Number: CA-TEVA-2019-CA-1086197

PATIENT
  Age: 65 Year
  Sex: Male

DRUGS (16)
  1. LEFLUNOMIDE. [Suspect]
     Active Substance: LEFLUNOMIDE
     Route: 048
  2. RITUXAN [Suspect]
     Active Substance: RITUXIMAB
     Indication: RHEUMATOID ARTHRITIS
     Route: 042
  3. XELJANZ [Concomitant]
     Active Substance: TOFACITINIB CITRATE
     Route: 065
  4. HUMIRA [Suspect]
     Active Substance: ADALIMUMAB
     Indication: RHEUMATOID ARTHRITIS
     Route: 058
  5. DICLOFENAC [Concomitant]
     Active Substance: DICLOFENAC
     Dosage: 100 MILLIGRAM DAILY;
     Route: 065
  6. ENBREL [Suspect]
     Active Substance: ETANERCEPT
     Indication: RHEUMATOID ARTHRITIS
     Route: 065
  7. DESOXIMETASONE. [Concomitant]
     Active Substance: DESOXIMETASONE
     Dosage: 10 MILLIGRAM DAILY;
     Route: 065
  8. VOLTAREN [DICLOFENAC] [Concomitant]
     Active Substance: DICLOFENAC SODIUM
     Dosage: 100 MILLIGRAM DAILY;
     Route: 065
  9. REMICADE [Suspect]
     Active Substance: INFLIXIMAB
     Indication: RHEUMATOID ARTHRITIS
     Route: 042
  10. METHOTREXATE. [Concomitant]
     Active Substance: METHOTREXATE
     Route: 065
  11. LEFLUNOMIDE. [Suspect]
     Active Substance: LEFLUNOMIDE
     Indication: RHEUMATOID ARTHRITIS
     Route: 065
  12. HYDROXYCHLOROQUINE SULFATE. [Suspect]
     Active Substance: HYDROXYCHLOROQUINE SULFATE
     Indication: RHEUMATOID ARTHRITIS
     Route: 042
  13. HYDROXYCHLOROQUINE SULFATE. [Suspect]
     Active Substance: HYDROXYCHLOROQUINE SULFATE
     Route: 048
  14. ORENCIA [Suspect]
     Active Substance: ABATACEPT
     Indication: RHEUMATOID ARTHRITIS
     Route: 065
  15. SULFASALAZINE. [Suspect]
     Active Substance: SULFASALAZINE
     Indication: RHEUMATOID ARTHRITIS
     Route: 065
  16. DESOXIMETASONE. [Concomitant]
     Active Substance: DESOXIMETASONE
     Dosage: 10 MILLIGRAM DAILY;
     Route: 065

REACTIONS (6)
  - Arthritis [Unknown]
  - Lymphoma [Unknown]
  - Alopecia [Unknown]
  - Drug tolerance decreased [Unknown]
  - Drug ineffective [Unknown]
  - Drug intolerance [Unknown]
